FAERS Safety Report 5877716-3 (Version None)
Quarter: 2008Q3

REPORT INFORMATION
  Report Type: 
  Country: None (occurrence: None)
  Receive Date: 20080911
  Receipt Date: 20080901
  Transmission Date: 20090109
  Serious: Yes (Life-Threatening, Hospitalization)
  Sender: FDA-Public Use
  Company Number: BR-JNJFOC-20080900606

PATIENT
  Sex: Male
  Weight: 54 kg

DRUGS (1)
  1. REMICADE [Suspect]
     Indication: CROHN'S DISEASE
     Dosage: 8 INFUSIONS TOTAL
     Route: 042

REACTIONS (2)
  - ANAL FISTULA [None]
  - VISCERAL LEISHMANIASIS [None]
